FAERS Safety Report 25588352 (Version 1)
Quarter: 2025Q3

REPORT INFORMATION
  Report Type: Spontaneous
  Country: US (occurrence: US)
  Receive Date: 20250722
  Receipt Date: 20250722
  Transmission Date: 20251021
  Serious: No
  Sender: ENDO
  Company Number: US-ENDO USA, INC.-2025-000824

PATIENT
  Sex: Male

DRUGS (20)
  1. EDEX [Suspect]
     Active Substance: ALPROSTADIL
     Indication: Erectile dysfunction
     Route: 017
     Dates: start: 202412
  2. EDEX [Suspect]
     Active Substance: ALPROSTADIL
     Indication: Erectile dysfunction
     Route: 017
     Dates: start: 202412
  3. EDEX [Suspect]
     Active Substance: ALPROSTADIL
     Indication: Erectile dysfunction
     Route: 017
     Dates: start: 202412
  4. EDEX [Suspect]
     Active Substance: ALPROSTADIL
     Indication: Erectile dysfunction
     Route: 017
     Dates: start: 202412
  5. EDEX [Suspect]
     Active Substance: ALPROSTADIL
     Indication: Erectile dysfunction
     Route: 017
     Dates: start: 202412
  6. EDEX [Suspect]
     Active Substance: ALPROSTADIL
     Route: 017
     Dates: start: 20250213
  7. EDEX [Suspect]
     Active Substance: ALPROSTADIL
     Route: 017
     Dates: start: 20250213
  8. EDEX [Suspect]
     Active Substance: ALPROSTADIL
     Route: 017
     Dates: start: 20250213
  9. EDEX [Suspect]
     Active Substance: ALPROSTADIL
     Route: 017
     Dates: start: 20250213
  10. EDEX [Suspect]
     Active Substance: ALPROSTADIL
     Route: 017
     Dates: start: 20250213
  11. EDEX [Suspect]
     Active Substance: ALPROSTADIL
     Route: 017
     Dates: start: 20250301
  12. EDEX [Suspect]
     Active Substance: ALPROSTADIL
     Route: 017
     Dates: start: 20250301
  13. EDEX [Suspect]
     Active Substance: ALPROSTADIL
     Route: 017
     Dates: start: 20250301
  14. EDEX [Suspect]
     Active Substance: ALPROSTADIL
     Route: 017
     Dates: start: 20250301
  15. EDEX [Suspect]
     Active Substance: ALPROSTADIL
     Route: 017
     Dates: start: 20250301
  16. EDEX [Suspect]
     Active Substance: ALPROSTADIL
     Route: 017
     Dates: start: 2023
  17. EDEX [Suspect]
     Active Substance: ALPROSTADIL
     Route: 017
     Dates: start: 2023
  18. EDEX [Suspect]
     Active Substance: ALPROSTADIL
     Route: 017
     Dates: start: 2023
  19. EDEX [Suspect]
     Active Substance: ALPROSTADIL
     Route: 017
     Dates: start: 2023
  20. EDEX [Suspect]
     Active Substance: ALPROSTADIL
     Route: 017
     Dates: start: 2023

REACTIONS (4)
  - Drug ineffective [Not Recovered/Not Resolved]
  - Product storage error [Recovered/Resolved]
  - Intentional product use issue [Recovered/Resolved]
  - Suspected product quality issue [Unknown]

NARRATIVE: CASE EVENT DATE: 20230101
